FAERS Safety Report 5227629-5 (Version None)
Quarter: 2007Q1

REPORT INFORMATION
  Report Type: 
  Country: None (occurrence: None)
  Receive Date: 20070202
  Receipt Date: 20070122
  Transmission Date: 20070707
  Serious: Yes (Other)
  Sender: FDA-Public Use
  Company Number: US-NOVOPROD-257918

PATIENT
  Sex: Female
  Weight: 88.435 kg

DRUGS (10)
  1. ACTIVELLA [Suspect]
     Indication: MENOPAUSAL SYMPTOMS
     Dosage: .5 MG, UNK
  2. PREMARIN [Suspect]
     Indication: MENOPAUSAL SYMPTOMS
     Dosage: 1.25 MG, UNK
  3. PREMARIN [Suspect]
     Dosage: .625 MG, UNK
  4. PROVERA [Suspect]
     Indication: MENOPAUSAL SYMPTOMS
     Dosage: 10 MG, UNK
  5. PROVERA [Suspect]
     Dosage: 2.5 MG, UNK
  6. SYNTHROID [Concomitant]
     Indication: HYPOTHYROIDISM
     Dosage: UNKNOWN
     Dates: start: 20040101
  7. ZETIA [Concomitant]
     Indication: BLOOD CHOLESTEROL
     Dosage: UNKNOWN
     Dates: start: 20060101
  8. REDUX                              /00061602/ [Concomitant]
     Indication: WEIGHT DECREASED
     Dosage: UNKNOWN
     Dates: start: 19970101, end: 19990101
  9. MOBIC [Concomitant]
     Indication: OSTEOPOROSIS
     Dates: start: 20060101
  10. MOBIC [Concomitant]
     Indication: OSTEOARTHRITIS

REACTIONS (1)
  - BREAST CANCER [None]
